FAERS Safety Report 24802803 (Version 2)
Quarter: 2025Q3

REPORT INFORMATION
  Report Type: Report from Study
  Country: US (occurrence: US)
  Receive Date: 20250103
  Receipt Date: 20250810
  Transmission Date: 20251021
  Serious: Yes (Hospitalization)
  Sender: ALEXION PHARMACEUTICALS
  Company Number: 202412USA024521US

PATIENT
  Sex: Male

DRUGS (1)
  1. OLAPARIB [Suspect]
     Active Substance: OLAPARIB
     Indication: Prostate cancer
     Dosage: 300 MILLIGRAM, BID
     Dates: start: 202409

REACTIONS (8)
  - Hypotension [Unknown]
  - Confusional state [Unknown]
  - Nausea [Unknown]
  - Fatigue [Unknown]
  - Blood creatinine increased [Unknown]
  - Dehydration [Unknown]
  - Vomiting [Unknown]
  - Product dose omission issue [Unknown]
